FAERS Safety Report 6187216-1 (Version None)
Quarter: 2009Q2

REPORT INFORMATION
  Report Type: 
  Country: None (occurrence: None)
  Receive Date: 20090512
  Receipt Date: 20090505
  Transmission Date: 20091009
  Serious: Yes (Hospitalization, Other)
  Sender: FDA-Public Use
  Company Number: PHHY2009CA11277

PATIENT
  Sex: Male

DRUGS (3)
  1. CLOZARIL [Suspect]
     Indication: SCHIZOPHRENIA
     Dosage: UNK
     Route: 048
     Dates: start: 20080229
  2. CLOZARIL [Suspect]
     Dosage: UNK
     Route: 048
     Dates: start: 20090303, end: 20090326
  3. SEROQUEL [Concomitant]
     Dosage: 400MG
     Dates: start: 20000101

REACTIONS (3)
  - FALL [None]
  - LOWER LIMB FRACTURE [None]
  - REHABILITATION THERAPY [None]
